FAERS Safety Report 6875841-1 (Version None)
Quarter: 2010Q3

REPORT INFORMATION
  Report Type: 
  Country: None (occurrence: None)
  Receive Date: 20100727
  Receipt Date: 20100714
  Transmission Date: 20110219
  Serious: Yes (Hospitalization, Other)
  Sender: FDA-Public Use
  Company Number: PHHY2010IT46639

PATIENT
  Sex: Male

DRUGS (10)
  1. SANDIMMUNE [Suspect]
     Indication: LIVER TRANSPLANT
     Dosage: 175 MG, QD
     Route: 048
     Dates: start: 20100515, end: 20100702
  2. SANDIMMUNE [Suspect]
     Indication: IMMUNOSUPPRESSION
     Dosage: 175 MG, QD
     Route: 048
     Dates: start: 20100706
  3. MACLADIN [Suspect]
     Indication: HELICOBACTER INFECTION
     Dosage: 2 DF, QD
     Route: 048
     Dates: start: 20100624, end: 20100702
  4. AMOXICILLIN [Concomitant]
     Indication: HELICOBACTER INFECTION
     Dosage: UNK
     Route: 048
     Dates: start: 20100624, end: 20100702
  5. OMEPRAZOLE [Concomitant]
     Dosage: 20 MG, UNK
     Route: 048
     Dates: start: 20100216, end: 20100630
  6. DEURSIL [Concomitant]
     Dosage: 3 DF, UNK
     Route: 048
  7. LEXIL [Concomitant]
     Dosage: 2 DF, UNK
     Route: 048
  8. DURAGESIC-100 [Concomitant]
     Dosage: 1 DF, UNK
  9. CALCIUM SANDOZ [Concomitant]
     Dosage: 3 DF, UNK
     Route: 048
  10. LASIX [Concomitant]
     Dosage: 0.5 MG, UNK
     Route: 048

REACTIONS (3)
  - HALLUCINATION, VISUAL [None]
  - HELICOBACTER INFECTION [None]
  - IMMUNOSUPPRESSANT DRUG LEVEL INCREASED [None]
